FAERS Safety Report 8992641 (Version 2)
Quarter: 2013Q1

REPORT INFORMATION
  Report Type: Spontaneous
  Country: US (occurrence: US)
  Receive Date: 20130101
  Receipt Date: 20130312
  Transmission Date: 20140127
  Serious: Yes (Death)
  Sender: FDA-Public Use
  Company Number: PHEH2012US025439

PATIENT
  Age: 66 Year
  Sex: Male

DRUGS (2)
  1. AFINITOR [Suspect]
     Indication: COLON CANCER
  2. REGORAFENIB [Suspect]
     Indication: COLON CANCER
     Dosage: 4 DF, QD
     Route: 048
     Dates: start: 20120414

REACTIONS (2)
  - Colon cancer [Fatal]
  - Malignant neoplasm progression [Fatal]
